FAERS Safety Report 7468978-X (Version None)
Quarter: 2011Q2

REPORT INFORMATION
  Report Type: 
  Country: None (occurrence: None)
  Receive Date: 20110429
  Receipt Date: 20110415
  Transmission Date: 20111010
  Serious: Yes (Life-Threatening, Hospitalization)
  Sender: FDA-Public Use
  Company Number: DSA_45449_2011

PATIENT
  Age: 81 Year
  Sex: Male

DRUGS (6)
  1. FUROSEMIDE [Concomitant]
  2. DILTIAZEM HYDROCHLORIDE [Suspect]
     Indication: ATRIAL FIBRILLATION
     Dosage: (120 MG QD ORAL)
     Route: 048
     Dates: end: 20100109
  3. ALLOPURINOL [Concomitant]
  4. PARAPRES [Concomitant]
  5. AMIODARONE HCL [Suspect]
     Indication: ATRIAL FIBRILLATION
     Dosage: (200 MG QD ORAL), (600 MG WEEKLY ORAL)
     Route: 048
     Dates: start: 20091219, end: 20100119
  6. METFORMIN HCL [Concomitant]

REACTIONS (3)
  - BUNDLE BRANCH BLOCK RIGHT [None]
  - DRUG INTERACTION [None]
  - ATRIOVENTRICULAR BLOCK COMPLETE [None]
